FAERS Safety Report 7602548 (Version 2)
Quarter: 2013Q4

REPORT INFORMATION
  Report Type: Spontaneous
  Country: US (occurrence: US)
  Receive Date: 20100923
  Receipt Date: 20131213
  Transmission Date: 20140711
  Serious: Yes (Other)
  Sender: FDA-Public Use
  Company Number: US-BAYER-201034266NA

PATIENT
  Age: 23 Year
  Sex: Female
  Weight: 49.89 kg

DRUGS (6)
  1. YASMIN [Suspect]
     Indication: PRODUCT USED FOR UNKNOWN INDICATION
     Dosage: UNK UNK, QD
     Route: 048
     Dates: start: 20070526, end: 20070726
  2. HYDROCODONE W/APAP [Concomitant]
     Dosage: 5/500
  3. OXYCODONE/APAP [Concomitant]
     Dosage: 3/325MG
  4. ZOLPIDEM [Concomitant]
     Dosage: 10 MG, UNK
  5. IBUPROFEN [Concomitant]
  6. PROVENTIL [Concomitant]

REACTIONS (4)
  - Biliary colic [None]
  - Scar [None]
  - Cholecystitis chronic [None]
  - Ectopic pregnancy [None]
